FAERS Safety Report 18311293 (Version 1)
Quarter: 2020Q3

REPORT INFORMATION
  Report Type: Spontaneous
  Country: US (occurrence: US)
  Receive Date: 20200923
  Receipt Date: 20200923
  Transmission Date: 20201103
  Serious: Yes (Death, Hospitalization, Other)
  Sender: FDA-Public Use
  Company Number: None

PATIENT
  Age: 64 Year
  Sex: Male

DRUGS (8)
  1. CHOLESTEROL [Concomitant]
     Active Substance: CHOLESTEROL
  2. STOMACH PILLS [Concomitant]
  3. TUMS [Concomitant]
     Active Substance: CALCIUM CARBONATE
  4. BLOOD PRESSURE MEDS [Concomitant]
  5. NEBULIZER AND OXYGEN [Concomitant]
  6. TYLENOL [Concomitant]
     Active Substance: ACETAMINOPHEN
  7. VEKLURY [Suspect]
     Active Substance: REMDESIVIR
     Indication: COVID-19
  8. BABY ASPIRIN [Concomitant]
     Active Substance: ASPIRIN

REACTIONS (3)
  - Pneumothorax [None]
  - Transfusion [None]
  - Cardiac arrest [None]

NARRATIVE: CASE EVENT DATE: 20200804
